FAERS Safety Report 5171127-4 (Version None)
Quarter: 2006Q4

REPORT INFORMATION
  Report Type: 
  Country: None (occurrence: None)
  Receive Date: 20061206
  Receipt Date: 20061206
  Transmission Date: 20070319
  Serious: Yes (Life-Threatening)
  Sender: FDA-Public Use
  Company Number: None

PATIENT
  Age: 61 Year
  Sex: Female
  Weight: 51 kg

DRUGS (17)
  1. TIGECYCLINE -TYGACIL-   50 MG VIAL [Suspect]
     Indication: PERITONITIS BACTERIAL
     Dosage: 100MG  X1 -LOADING DOSE IV  4 DOSES
     Route: 042
     Dates: start: 20061011, end: 20061012
  2. TIGECYCLINE -TYGACIL-   50 MG VIAL [Suspect]
     Dosage: 50MG Q 12 HR IV
     Route: 042
  3. GENTAMICIN 48MG IN DIANEAL-PD W/1.5% DEXTROSE SOLUTION [Concomitant]
  4. GENTAMICIN 120MG + VANCOMYCIN 240MG IN DIANEAL-PD/1.5% DEXTROSE SOLUTI [Concomitant]
  5. LEVAQUIN [Concomitant]
  6. FLAGYL [Concomitant]
  7. RIFAMPIN [Concomitant]
  8. VANCOMYCIN [Concomitant]
  9. DOXERCALCIFEROL [Concomitant]
  10. PROTONIX [Concomitant]
  11. TPN [Concomitant]
  12. CELEXA [Concomitant]
  13. FLEXERIL [Concomitant]
  14. ENOXAPARIN SODIUM [Concomitant]
  15. PROCRIT [Concomitant]
  16. SLIDING SCALE INSULIN [Concomitant]
  17. NORMODYNE [Concomitant]

REACTIONS (3)
  - CONDITION AGGRAVATED [None]
  - LIPASE INCREASED [None]
  - PANCREATITIS [None]
